FAERS Safety Report 6089325-4 (Version None)
Quarter: 2009Q1

REPORT INFORMATION
  Report Type: 
  Country: None (occurrence: None)
  Receive Date: 20090224
  Receipt Date: 20090210
  Transmission Date: 20090719
  Serious: Yes (Hospitalization, Other)
  Sender: FDA-Public Use
  Company Number: PHHY2009ZA04774

PATIENT
  Sex: Male

DRUGS (6)
  1. TAREG [Suspect]
     Dosage: 80 MG, BID
     Route: 048
     Dates: start: 20080801
  2. CARLOC [Concomitant]
     Dosage: 12.5 MG, BID
  3. PROPRANOLOL [Concomitant]
  4. GLUCOPHAGE [Concomitant]
  5. SIMVASTATIN [Concomitant]
  6. ASPIRIN [Concomitant]

REACTIONS (8)
  - ARTERIAL OCCLUSIVE DISEASE [None]
  - BLOOD CHOLESTEROL INCREASED [None]
  - BLOOD PRESSURE INADEQUATELY CONTROLLED [None]
  - CARDIAC DISORDER [None]
  - DYSPNOEA EXERTIONAL [None]
  - GLUCOSE TOLERANCE IMPAIRED [None]
  - HYPERTENSION [None]
  - STRESS [None]
